FAERS Safety Report 5104720-5 (Version None)
Quarter: 2006Q3

REPORT INFORMATION
  Report Type: 
  Country: None (occurrence: None)
  Receive Date: 20060731
  Receipt Date: 20050722
  Transmission Date: 20061208
  Serious: Yes (Death)
  Sender: FDA-Public Use
  Company Number: US-JNJFOC-20050502457

PATIENT
  Age: 76 Year
  Sex: Male

DRUGS (8)
  1. RISPERDAL [Suspect]
     Indication: ANXIETY DISORDER
     Dosage: 1 MG, 2 IN 1 DAY
  2. HUMILIN 70/30 () HUMAN MIXTARD [Concomitant]
  3. LORAZEPAM [Concomitant]
  4. LASIX [Concomitant]
  5. POTASSIUM () POTASSIUM [Concomitant]
  6. ASPIRIN [Concomitant]
  7. IMIPRAMINE [Concomitant]
  8. SLEEPING PILL (OTHER HYPNOTICS AND SEDATIVES) [Concomitant]

REACTIONS (1)
  - CEREBROVASCULAR ACCIDENT [None]
